FAERS Safety Report 5685317-5 (Version None)
Quarter: 2008Q1

REPORT INFORMATION
  Report Type: 
  Country: None (occurrence: None)
  Receive Date: 20080328
  Receipt Date: 20080320
  Transmission Date: 20080703
  Serious: Yes (Death, Life-Threatening, Hospitalization)
  Sender: FDA-Public Use
  Company Number: US-GENENTECH-258123

PATIENT
  Sex: Female

DRUGS (22)
  1. BEVACIZUMAB [Suspect]
     Indication: BREAST CANCER
     Dosage: 675 MG, UNK
     Route: 042
     Dates: start: 20070201
  2. BEVACIZUMAB [Suspect]
     Dosage: 1013 MG, UNK
     Route: 042
     Dates: start: 20071205
  3. ADRIAMYCIN PFS [Suspect]
     Indication: BREAST CANCER
  4. CYTOXAN [Suspect]
     Indication: BREAST CANCER
  5. TAXOL [Suspect]
     Indication: BREAST CANCER
  6. XELODA [Concomitant]
     Indication: DRUG USE FOR UNKNOWN INDICATION
     Route: 048
  7. NEULASTA [Concomitant]
     Indication: DRUG USE FOR UNKNOWN INDICATION
  8. CEFEPIME [Concomitant]
     Indication: DRUG USE FOR UNKNOWN INDICATION
  9. ANTITUBERCULOUS AGENTS [Concomitant]
     Indication: DRUG USE FOR UNKNOWN INDICATION
  10. ALBUMIN (HUMAN) [Concomitant]
     Indication: DRUG USE FOR UNKNOWN INDICATION
  11. FUROSEMIDE [Concomitant]
     Indication: DRUG USE FOR UNKNOWN INDICATION
  12. ALPRAZOLAM [Concomitant]
     Indication: DRUG USE FOR UNKNOWN INDICATION
  13. ARANESP [Concomitant]
     Indication: DRUG USE FOR UNKNOWN INDICATION
  14. DARBEPOETIN ALFA [Concomitant]
     Indication: DRUG USE FOR UNKNOWN INDICATION
  15. CALCIUM GLUCONATE [Concomitant]
     Indication: DRUG USE FOR UNKNOWN INDICATION
  16. CAPECITABINE [Concomitant]
     Indication: DRUG USE FOR UNKNOWN INDICATION
  17. FAMOTIDINE [Concomitant]
     Indication: DRUG USE FOR UNKNOWN INDICATION
  18. FENTANYL [Concomitant]
     Indication: DRUG USE FOR UNKNOWN INDICATION
  19. METHYLPREDNISOLONE [Concomitant]
     Indication: DRUG USE FOR UNKNOWN INDICATION
  20. PIPERACILLIN AND TAZOBACTAM [Concomitant]
     Indication: DRUG USE FOR UNKNOWN INDICATION
  21. PROCHLORPERAZINE [Concomitant]
     Indication: DRUG USE FOR UNKNOWN INDICATION
  22. PROPOXYPHENE HYDROCHLORIDE [Concomitant]
     Indication: DRUG USE FOR UNKNOWN INDICATION

REACTIONS (26)
  - ACID FAST BACILLI INFECTION [None]
  - ALANINE AMINOTRANSFERASE INCREASED [None]
  - ASPARTATE AMINOTRANSFERASE INCREASED [None]
  - BACK PAIN [None]
  - BLOOD ALKALINE PHOSPHATASE INCREASED [None]
  - BRONCHOALVEOLAR LAVAGE ABNORMAL [None]
  - CARDIAC ARREST [None]
  - CHILLS [None]
  - DISSEMINATED INTRAVASCULAR COAGULATION [None]
  - HEART RATE INCREASED [None]
  - LUNG INFILTRATION [None]
  - LUNG NEOPLASM [None]
  - METASTASES TO BONE [None]
  - METASTASES TO LIVER [None]
  - METASTASES TO SPINE [None]
  - MITRAL VALVE PROLAPSE [None]
  - MUSCULOSKELETAL CHEST PAIN [None]
  - MUSCULOSKELETAL PAIN [None]
  - MYOCARDIAL ISCHAEMIA [None]
  - NIGHT SWEATS [None]
  - PULMONARY FIBROSIS [None]
  - PULMONARY HYPERTENSION [None]
  - RESPIRATORY FAILURE [None]
  - SPINAL OSTEOARTHRITIS [None]
  - TRICUSPID VALVE INCOMPETENCE [None]
  - VENTRICULAR HYPERTROPHY [None]
